FAERS Safety Report 7939980-6 (Version None)
Quarter: 2011Q4

REPORT INFORMATION
  Report Type: 
  Country: None (occurrence: None)
  Receive Date: 20111125
  Receipt Date: 20111111
  Transmission Date: 20120403
  Serious: Yes (Death, Hospitalization, Other)
  Sender: FDA-Public Use
  Company Number: JP-ROCHE-773951

PATIENT
  Sex: Male

DRUGS (16)
  1. HUMIRA [Concomitant]
     Route: 058
     Dates: start: 20090710, end: 20100402
  2. TICLOPIDINE HCL [Concomitant]
     Dosage: DOSE FORM: PERORAL AGENT
     Route: 048
  3. ACTEMRA [Suspect]
     Indication: RHEUMATOID ARTHRITIS
     Route: 041
     Dates: start: 20090324, end: 20090324
  4. ACTEMRA [Suspect]
     Route: 041
     Dates: start: 20090421, end: 20090421
  5. DEPAS [Concomitant]
     Route: 048
  6. ACTEMRA [Suspect]
     Route: 041
     Dates: start: 20090616, end: 20090616
  7. ACTEMRA [Suspect]
     Route: 041
     Dates: start: 20090519, end: 20090519
  8. FOLIC ACID [Concomitant]
     Route: 048
  9. MUCOSTA [Concomitant]
     Route: 048
  10. ISOSORBIDE MONONITRATE [Concomitant]
     Dosage: DOSE FORM: PERORAL AGENT
     Route: 048
  11. ASPIRIN [Concomitant]
     Route: 048
  12. RABEPRAZOLE SODIUM [Concomitant]
     Route: 048
  13. MECOBALAMINE [Concomitant]
     Route: 048
  14. CLINORIL [Concomitant]
     Route: 048
  15. ALOSENN [Concomitant]
     Dosage: DOSE FORM: PERORAL AGENT
     Route: 048
  16. TICLOPIDINE HYDROCHLORIDE [Concomitant]
     Route: 048

REACTIONS (6)
  - RENAL FAILURE [None]
  - C-REACTIVE PROTEIN INCREASED [None]
  - AMYLOIDOSIS [None]
  - AZOTAEMIA [None]
  - CARDIAC FAILURE CONGESTIVE [None]
  - GENERAL PHYSICAL HEALTH DETERIORATION [None]
